FAERS Safety Report 10222114 (Version 1)
Quarter: 2014Q2

REPORT INFORMATION
  Report Type: Spontaneous
  Country: US (occurrence: US)
  Receive Date: 20140606
  Receipt Date: 20140606
  Transmission Date: 20141212
  Serious: Yes (Other)
  Sender: FDA-Public Use
  Company Number: US-009507513-1406USA001385

PATIENT
  Sex: Female

DRUGS (2)
  1. PRINIVIL [Suspect]
     Dosage: UNK
     Route: 048
  2. COUMADIN [Concomitant]

REACTIONS (4)
  - Cardiac pacemaker insertion [Unknown]
  - Tongue disorder [Unknown]
  - Dyspnoea [Unknown]
  - Cardiac disorder [Unknown]
